FAERS Safety Report 14115972 (Version 1)
Quarter: 2017Q4

REPORT INFORMATION
  Report Type: Spontaneous
  Country: US (occurrence: US)
  Receive Date: 20171023
  Receipt Date: 20171023
  Transmission Date: 20180321
  Serious: No
  Sender: FDA-Public Use
  Company Number: US-BAYER-2017-183967

PATIENT
  Age: 49 Year
  Sex: Male
  Weight: 112 kg

DRUGS (8)
  1. CLARITIN [Suspect]
     Active Substance: LORATADINE
     Indication: SINUS DISORDER
     Dosage: 10 MG, QD AS NEEDED
     Route: 048
     Dates: start: 2016
  2. FLONASE [Concomitant]
     Active Substance: FLUTICASONE PROPIONATE
  3. LOSARTAN POTASSIUM. [Concomitant]
     Active Substance: LOSARTAN POTASSIUM
  4. ONE A DAY MAXIMUM [Concomitant]
  5. TRAMAL [Concomitant]
     Active Substance: TRAMADOL
  6. CLARITIN [Suspect]
     Active Substance: LORATADINE
     Indication: MULTIPLE ALLERGIES
  7. MELOXICAM. [Concomitant]
     Active Substance: MELOXICAM
  8. OMEPRAZOLE. [Concomitant]
     Active Substance: OMEPRAZOLE

REACTIONS (1)
  - Blood pressure increased [Recovering/Resolving]

NARRATIVE: CASE EVENT DATE: 201709
